FAERS Safety Report 26208907 (Version 1)
Quarter: 2025Q4

REPORT INFORMATION
  Report Type: Spontaneous
  Country: US (occurrence: None)
  Receive Date: 20251229
  Receipt Date: 20251229
  Transmission Date: 20260118
  Serious: Yes (Life-Threatening, Hospitalization, Disabling)
  Sender: FDA-CTU
  Company Number: None

PATIENT
  Age: 65 Year
  Sex: Male
  Weight: 64.3 kg

DRUGS (2)
  1. MEKTOVI [Suspect]
     Active Substance: BINIMETINIB
     Indication: Metastatic malignant melanoma
     Dates: start: 20250114, end: 20251224
  2. BRAFTOVI [Suspect]
     Active Substance: ENCORAFENIB

REACTIONS (2)
  - Large intestine perforation [None]
  - Colitis [None]

NARRATIVE: CASE EVENT DATE: 20251228
